FAERS Safety Report 4559067-2 (Version None)
Quarter: 2005Q1

REPORT INFORMATION
  Report Type: 
  Country: None (occurrence: None)
  Receive Date: 20050124
  Receipt Date: 20041222
  Transmission Date: 20050727
  Serious: Yes (Other)
  Sender: FDA-Public Use
  Company Number: JP-BRISTOL-MYERS SQUIBB COMPANY-12807376

PATIENT
  Age: 78 Year
  Sex: Female

DRUGS (15)
  1. GATIFLO TABS 100 MG [Suspect]
     Indication: UPPER RESPIRATORY TRACT INFECTION
     Route: 048
     Dates: start: 20041218, end: 20041221
  2. GATIFLO TABS 100 MG [Suspect]
     Indication: PNEUMONIA ASPIRATION
     Route: 048
     Dates: start: 20041218, end: 20041221
  3. GATIFLO TABS 100 MG [Suspect]
     Indication: CYSTITIS
     Route: 048
     Dates: start: 20041218, end: 20041221
  4. MAGNESIUM OXIDE [Concomitant]
     Route: 048
     Dates: start: 20041208
  5. BIOFERMIN [Concomitant]
     Route: 048
     Dates: start: 20041208
  6. PURSENNID [Concomitant]
     Route: 048
     Dates: start: 20041208
  7. DAONIL [Concomitant]
     Dosage: 3.75 MG DAILY 12/17-12/19/04, 3.125 MG DAILY 12/20/04, 3.75 MG DAILY 12/21-12/22/04
     Route: 048
     Dates: start: 20041217, end: 20041222
  8. LASIX [Concomitant]
     Route: 048
     Dates: start: 20041210
  9. RABEPRAZOLE SODIUM [Concomitant]
     Route: 048
     Dates: start: 20041204
  10. NOVOLIN R [Concomitant]
     Dosage: 6 U AM, 6 U MIDDAY, 4 U PM THROUGH 12/17/04 AM, RESTARTED 12/22/04
  11. NOVOLIN N [Concomitant]
     Dosage: 4 U PM THROUGH 12/17/04, RESTARTED 12/22/04
  12. PLETAL [Concomitant]
     Route: 048
     Dates: start: 20041209
  13. ALLOID [Concomitant]
     Route: 048
     Dates: start: 20041126
  14. CHLORPROMAZINE HCL [Concomitant]
     Route: 048
     Dates: start: 20041206
  15. BENZALIN [Concomitant]
     Route: 048
     Dates: start: 20041207

REACTIONS (1)
  - HYPERGLYCAEMIA [None]
